FAERS Safety Report 9856620 (Version 1)
Quarter: 2014Q1

REPORT INFORMATION
  Report Type: Spontaneous
  Country: BR (occurrence: BR)
  Receive Date: 20140130
  Receipt Date: 20140130
  Transmission Date: 20141002
  Serious: Yes (Congenital Anomaly, Other)
  Sender: FDA-Public Use
  Company Number: BR-009507513-1401BRA014168

PATIENT
  Sex: Male

DRUGS (3)
  1. IMPLANON [Suspect]
     Indication: CONTRACEPTION
     Dosage: 1 DF, UNKNOWN
     Route: 064
  2. IMPLANON [Suspect]
     Dosage: 1 DF, UNKNOWN
     Route: 064
  3. IMPLANON [Suspect]
     Dosage: UNK
     Route: 064

REACTIONS (3)
  - Ear malformation [Unknown]
  - Hearing impaired [Unknown]
  - Foetal exposure during pregnancy [Unknown]
